FAERS Safety Report 19191260 (Version 2)
Quarter: 2025Q4

REPORT INFORMATION
  Report Type: Spontaneous
  Country: EU (occurrence: EU)
  Receive Date: 20210429
  Receipt Date: 20251217
  Transmission Date: 20260119
  Serious: Yes (Hospitalization)
  Sender: RANBAXY
  Company Number: EU-SUN PHARMACEUTICAL INDUSTRIES LTD-2021RR-293554

PATIENT
  Age: 6 Year
  Sex: Female

DRUGS (6)
  1. LEVOFLOXACIN [Suspect]
     Active Substance: LEVOFLOXACIN
     Indication: Tuberculosis
     Dosage: 18.5 MILLIGRAM/KILOGRAM, DAILY
     Route: 042
  2. LINEZOLID [Suspect]
     Active Substance: LINEZOLID
     Indication: Tuberculosis
     Dosage: 14 MILLIGRAM/KILOGRAM, DAILY
     Route: 042
  3. ACETAZOLAMIDE [Suspect]
     Active Substance: ACETAZOLAMIDE
     Indication: Intracranial pressure increased
     Route: 065
  4. CLOFAZIMINE [Suspect]
     Active Substance: CLOFAZIMINE
     Indication: Tuberculosis
     Dosage: 100 MILLIGRAM (EVERY SECOND DAY)
     Route: 042
  5. CYCLOSERINE [Suspect]
     Active Substance: CYCLOSERINE
     Indication: Tuberculosis
     Dosage: 18.5 MILLIGRAM/KILOGRAM, DAILY
     Route: 042
  6. ETHAMBUTOL [Suspect]
     Active Substance: ETHAMBUTOL HYDROCHLORIDE
     Indication: Tuberculosis
     Dosage: 18.5 MILLIGRAM/KILOGRAM, DAILY
     Route: 042

REACTIONS (3)
  - Pathogen resistance [Unknown]
  - Intracranial pressure increased [Unknown]
  - Metabolic acidosis [Unknown]
